FAERS Safety Report 9417062 (Version 2)
Quarter: 2013Q3

REPORT INFORMATION
  Report Type: Spontaneous
  Country: US (occurrence: None)
  Receive Date: 20130722
  Receipt Date: 20130806
  Transmission Date: 20140515
  Serious: Yes (Death, Other)
  Sender: FDA-Public Use
  Company Number: AMAG201300119

PATIENT
  Age: 62 Year
  Sex: Female
  Weight: 71.2 kg

DRUGS (10)
  1. FERAHEME [Suspect]
     Indication: ANAEMIA
     Dosage: 7ML, SINGLE, IV PUSH
     Route: 042
     Dates: start: 20130705, end: 20130705
  2. FERAHEME [Suspect]
     Indication: BLOOD IRON DECREASED
     Dosage: 7ML, SINGLE, IV PUSH
     Route: 042
     Dates: start: 20130705, end: 20130705
  3. XANAX (ALPRAZOLAM) [Concomitant]
  4. COMPAZINE (PROCHLORPERAZINE MALEATE) [Concomitant]
  5. OXYCODONE (OXYCODONE) [Concomitant]
  6. ZOFRAN (ONDANSETRON HYDROCHLORIDE) [Concomitant]
  7. DECADRON (DEXAMETHASONE ACETATE) [Concomitant]
  8. TAXOL (PACLITAXEL) [Concomitant]
  9. CARBOPLATIN (CARBOPLATIN) [Concomitant]
  10. NORMAL SALINE (NORMAL SALINE) [Concomitant]

REACTIONS (7)
  - Respiratory arrest [None]
  - Dyspnoea [None]
  - Unresponsive to stimuli [None]
  - Abdominal pain upper [None]
  - Infusion related reaction [None]
  - Haemoglobin decreased [None]
  - Haematocrit decreased [None]
